FAERS Safety Report 13423365 (Version 1)
Quarter: 2017Q2

REPORT INFORMATION
  Report Type: Spontaneous
  Country: FR (occurrence: FR)
  Receive Date: 20170410
  Receipt Date: 20170410
  Transmission Date: 20170830
  Serious: Yes (Hospitalization)
  Sender: FDA-Public Use
  Company Number: FR-009507513-1704FRA002227

PATIENT
  Age: 37 Year
  Sex: Male

DRUGS (2)
  1. LIPTRUZET [Suspect]
     Active Substance: ATORVASTATIN CALCIUM\EZETIMIBE
     Dosage: 1 DF, QD
     Route: 048
     Dates: start: 20170225, end: 20170308
  2. RAMIPRIL WINTHROP [Concomitant]
     Active Substance: RAMIPRIL
     Dosage: 1.25 MG, QD
     Route: 048
     Dates: start: 20170225

REACTIONS (2)
  - Hyperglycaemia [Recovering/Resolving]
  - Ketosis [Recovering/Resolving]

NARRATIVE: CASE EVENT DATE: 201703
